FAERS Safety Report 6348734-6 (Version None)
Quarter: 2009Q3

REPORT INFORMATION
  Report Type: 
  Country: None (occurrence: None)
  Receive Date: 20090911
  Receipt Date: 20090904
  Transmission Date: 20100115
  Serious: No
  Sender: FDA-Public Use
  Company Number: PHHY2009JP36095

PATIENT
  Age: 68 Year
  Sex: Female

DRUGS (1)
  1. LAMISIL [Suspect]
     Indication: ONYCHOMYCOSIS
     Dosage: 125 MG/DAY
     Route: 048

REACTIONS (1)
  - HEPATIC FUNCTION ABNORMAL [None]
